FAERS Safety Report 4735047-9 (Version None)
Quarter: 2005Q3

REPORT INFORMATION
  Report Type: 
  Country: None (occurrence: None)
  Receive Date: 20050804
  Receipt Date: 20050308
  Transmission Date: 20060218
  Serious: Yes (Hospitalization)
  Sender: FDA-Public Use
  Company Number: US-MERCK-0503USA01352

PATIENT
  Age: 63 Year
  Sex: Female
  Weight: 58 kg

DRUGS (5)
  1. VIOXX [Suspect]
     Indication: ARTHRALGIA
     Route: 048
     Dates: start: 20000605, end: 20041001
  2. PREMPRO [Concomitant]
     Route: 065
  3. TENORMIN [Concomitant]
     Route: 065
     Dates: start: 19850101
  4. ZOCOR [Concomitant]
     Route: 065
  5. TAMOXIFEN CITRATE [Concomitant]
     Route: 065

REACTIONS (2)
  - BREAST CANCER [None]
  - THROMBOSIS [None]
